FAERS Safety Report 4328134-0 (Version None)
Quarter: 2004Q1

REPORT INFORMATION
  Report Type: 
  Country: None (occurrence: None)
  Receive Date: 20040325
  Receipt Date: 20040219
  Transmission Date: 20041129
  Serious: No
  Sender: FDA-Public Use
  Company Number: 200310605BFR

PATIENT
  Age: 56 Year
  Sex: Male
  Weight: 80 kg

DRUGS (2)
  1. MOXIFLOXACIN HYDROCHLORIDE [Suspect]
     Indication: ACUTE SINUSITIS
     Dosage: 400 MG, TOTAL DAILY, ORAL
     Route: 048
     Dates: start: 20031101
  2. ZOLOFT [Concomitant]

REACTIONS (3)
  - DERMATITIS EXFOLIATIVE [None]
  - PARAESTHESIA [None]
  - PRURITUS [None]
